FAERS Safety Report 7978363 (Version 5)
Quarter: 2013Q1

REPORT INFORMATION
  Report Type: Spontaneous
  Country: US (occurrence: US)
  Receive Date: 20110607
  Receipt Date: 20130319
  Transmission Date: 20140127
  Serious: Yes (Hospitalization, Congenital Anomaly, Other)
  Sender: FDA-Public Use
  Company Number: US-PFIZER INC-2011119758

PATIENT
  Sex: Female

DRUGS (3)
  1. ZOLOFT [Suspect]
     Indication: DEPRESSION
     Dosage: UNK
     Route: 064
     Dates: start: 1997
  2. PAXIL [Suspect]
     Indication: DEPRESSION
     Dosage: UNK
     Route: 064
     Dates: start: 1999
  3. PRENATAL VITAMINS [Concomitant]
     Dosage: UNK
     Route: 064

REACTIONS (5)
  - Foetal exposure during pregnancy [Unknown]
  - Fallot^s tetralogy [Unknown]
  - Pulmonary valve stenosis [Unknown]
  - Single umbilical artery [Unknown]
  - Duane^s syndrome [Unknown]
